FAERS Safety Report 8239465-6 (Version None)
Quarter: 2012Q1

REPORT INFORMATION
  Report Type: 
  Country: None (occurrence: None)
  Receive Date: 20120328
  Receipt Date: 20120320
  Transmission Date: 20120608
  Serious: Yes (Hospitalization, Disabling)
  Sender: FDA-Public Use
  Company Number: PA-US-EMD SERONO, INC.-7119104

PATIENT
  Sex: Male
  Weight: 30 kg

DRUGS (1)
  1. SAIZEN [Suspect]
     Indication: PRODUCT USED FOR UNKNOWN INDICATION
     Dosage: 8MG / 24 UI
     Dates: start: 20100811, end: 20120301

REACTIONS (2)
  - GAIT DISTURBANCE [None]
  - ARTHROPATHY [None]
